FAERS Safety Report 8173654-4 (Version None)
Quarter: 2012Q1

REPORT INFORMATION
  Report Type: 
  Country: None (occurrence: None)
  Receive Date: 20120224
  Receipt Date: 20120223
  Transmission Date: 20120608
  Serious: Yes (Other)
  Sender: FDA-Public Use
  Company Number: 2012HGS-003249

PATIENT
  Age: 42 Year
  Sex: Female
  Weight: 58.9676 kg

DRUGS (9)
  1. GABAPENTIN [Concomitant]
  2. PREDNISONE TAB [Concomitant]
  3. BENLYSTA [Suspect]
     Indication: SYSTEMIC LUPUS ERYTHEMATOSUS
     Dosage: 600 MG, 1 IN 28 D, INTRAVENOUS  DRIP
     Route: 041
     Dates: start: 20111116, end: 20111116
  4. CELEXA [Concomitant]
  5. ZOCOR [Concomitant]
  6. VITAMIN D [Concomitant]
  7. AMBIEN [Concomitant]
  8. IMURAN [Concomitant]
  9. CALCIUM WITH VITAMIN D CALCIUM D3) [Concomitant]

REACTIONS (7)
  - MYALGIA [None]
  - VISION BLURRED [None]
  - FATIGUE [None]
  - JC VIRUS TEST POSITIVE [None]
  - AMNESIA [None]
  - SWELLING FACE [None]
  - SPEECH DISORDER [None]
